FAERS Safety Report 9808205 (Version 1)
Quarter: 2014Q1

REPORT INFORMATION
  Report Type: Spontaneous
  Country: JP (occurrence: JP)
  Receive Date: 20140110
  Receipt Date: 20140110
  Transmission Date: 20141002
  Serious: Yes (Death, Other)
  Sender: FDA-Public Use
  Company Number: JP-MALLINCKRODT-T201305230

PATIENT
  Age: 45 Year
  Sex: Female

DRUGS (31)
  1. METHADONE [Suspect]
     Indication: CANCER PAIN
     Dosage: 10 MG (DAILY DOSE 30 MG)
     Route: 048
     Dates: start: 20130806, end: 20130813
  2. METHADONE [Suspect]
     Dosage: 15 MG (DAILY DOSE 45 MG)
     Route: 048
     Dates: start: 20130813, end: 20130820
  3. METHADONE [Suspect]
     Dosage: 20 MG, (DAILY DOSE 60 MG)
     Route: 048
     Dates: start: 20130820, end: 20130827
  4. METHADONE [Suspect]
     Dosage: 25 MG ( DAILY DOSE 75 MG), QD
     Route: 048
     Dates: start: 20130827, end: 20130903
  5. METHADONE [Suspect]
     Dosage: 30 MG, (DAILY DOSE 90 MG), QD
     Route: 048
     Dates: start: 20130903, end: 20130910
  6. METHADONE [Suspect]
     Dosage: 35 MG (DAILY DOSE 105 MG), QD
     Route: 048
     Dates: start: 20130910, end: 20130917
  7. METHADONE [Suspect]
     Dosage: 40 MG (DAILY DOSE 120 MG), QD
     Route: 048
     Dates: start: 20130917, end: 20130920
  8. METHADONE [Suspect]
     Dosage: 45 MG (DAILY DOSE 135 MG), QD
     Route: 048
     Dates: start: 20130920, end: 20130925
  9. METHADONE [Suspect]
     Dosage: 40 MG (DAILY DOSE 120 MG), QD
     Route: 048
     Dates: start: 20130926, end: 20131007
  10. METHADONE [Suspect]
     Dosage: 40 MG (DAILY DOSE 80 MG), QD
     Route: 048
     Dates: start: 20131008, end: 20131021
  11. METHADONE [Suspect]
     Dosage: 20 MG (DAILY DOSE 40 MG), QD
     Route: 048
     Dates: start: 20131022, end: 20131029
  12. METHADONE [Suspect]
     Dosage: 10 MG (DAILY DOSE 20 MG), QD
     Route: 048
     Dates: start: 20131030, end: 20131106
  13. MORPHINE HYDROCHLORIDE [Suspect]
     Indication: PRODUCT USED FOR UNKNOWN INDICATION
     Dosage: 300 MG, UNK
     Route: 051
     Dates: start: 20130912, end: 20131110
  14. FENTOS [Suspect]
     Indication: PRODUCT USED FOR UNKNOWN INDICATION
     Dosage: 24 MG, UNK
     Route: 062
     Dates: start: 20130806, end: 20130929
  15. DEPAS [Suspect]
     Indication: PRODUCT USED FOR UNKNOWN INDICATION
     Dosage: 0.5 MG
     Route: 048
     Dates: start: 20130920, end: 20130930
  16. OXINORM [Suspect]
     Indication: PRODUCT USED FOR UNKNOWN INDICATION
     Dosage: UNK, PRN
     Route: 048
     Dates: start: 20130805
  17. TRAMAL [Suspect]
     Indication: PRODUCT USED FOR UNKNOWN INDICATION
     Dosage: 100 MG, UNK
     Route: 051
     Dates: start: 20130806, end: 20131011
  18. TRAMAL [Suspect]
     Dosage: 400 MG, UNK
     Route: 048
     Dates: end: 20130905
  19. KETALAR [Concomitant]
     Dosage: 50 MG, UNK
     Route: 042
     Dates: start: 20130911, end: 20131007
  20. LYRICA [Concomitant]
     Dosage: 450 MG, UNK
     Route: 048
     Dates: end: 20131015
  21. LOXONIN [Concomitant]
     Dosage: 180 MG, UNK
     Route: 048
     Dates: end: 20131106
  22. CELECOX [Concomitant]
     Dosage: 200 MG, UNK
     Route: 048
     Dates: end: 20130905
  23. TAKEPRON [Concomitant]
     Dosage: 15 MG, UNK
     Route: 048
     Dates: end: 20131106
  24. MAGLAX [Concomitant]
     Dosage: 1500 MG, UNK
     Route: 048
     Dates: end: 20131012
  25. WARFARIN POTASSIUM [Concomitant]
     Dosage: 1 MG
     Route: 048
     Dates: end: 20130929
  26. XYLOCAINE [Concomitant]
     Dosage: 100 MG, UNK
     Route: 051
     Dates: start: 20130809, end: 20131011
  27. ROPION [Concomitant]
     Dosage: 50 MG, UNK
     Route: 051
     Dates: start: 20130806, end: 20131011
  28. RESLIN [Concomitant]
     Dosage: 0.5
     Route: 048
     Dates: start: 20131003, end: 20131106
  29. SEROQUEL [Concomitant]
     Dosage: 25 MG, UNK
     Route: 048
     Dates: start: 20131002, end: 20131008
  30. RISPERDAL [Concomitant]
     Dosage: 25 MG, UNK
     Route: 048
     Dates: start: 20131015
  31. RIVOTRIL [Concomitant]
     Dosage: 0.25 MG, UNK
     Route: 048
     Dates: start: 20131011, end: 20131015

REACTIONS (3)
  - Urethral cancer [Fatal]
  - Delirium [Recovering/Resolving]
  - Myoclonus [Recovering/Resolving]
